FAERS Safety Report 5466127-0 (Version None)
Quarter: 2007Q3

REPORT INFORMATION
  Report Type: 
  Country: None (occurrence: None)
  Receive Date: 20070924
  Receipt Date: 20070910
  Transmission Date: 20080115
  Serious: Yes (Hospitalization)
  Sender: FDA-Public Use
  Company Number: JP-AMGEN-US244213

PATIENT
  Sex: Male

DRUGS (8)
  1. ENBREL [Suspect]
     Indication: RHEUMATOID ARTHRITIS
     Route: 058
     Dates: start: 20070515
  2. PREDNISOLONE [Suspect]
     Indication: RHEUMATOID ARTHRITIS
     Route: 048
  3. FAMOTIDINE [Concomitant]
     Dosage: UNKNOWN
     Route: 048
  4. PYDOXAL [Concomitant]
     Dosage: UNKNOWN
     Route: 048
  5. URSO 250 [Concomitant]
     Dosage: UNKNOWN
     Route: 048
  6. GLYCYRON [Concomitant]
     Dosage: UNKNOWN
     Route: 048
  7. IRSOGLADINE MALEATE [Concomitant]
     Dosage: UNKNOWN
     Route: 048
  8. ISCOTIN [Concomitant]
     Dosage: UNKNOWN
     Route: 048

REACTIONS (5)
  - ALANINE AMINOTRANSFERASE INCREASED [None]
  - ASPARTATE AMINOTRANSFERASE INCREASED [None]
  - CONDITION AGGRAVATED [None]
  - HEPATITIS C VIRUS [None]
  - PYREXIA [None]
